FAERS Safety Report 4543971-5 (Version None)
Quarter: 2005Q1

REPORT INFORMATION
  Report Type: 
  Country: None (occurrence: None)
  Receive Date: 20050103
  Receipt Date: 20030616
  Transmission Date: 20050727
  Serious: Yes (Other)
  Sender: FDA-Public Use
  Company Number: GXKR2003GB00495

PATIENT
  Age: 77 Year
  Sex: Male
  Weight: 100.8 kg

DRUGS (5)
  1. ALLOPURINOL (NGX) (ALLOPURINOL) [Suspect]
     Indication: GOUT
     Dosage: ORAL
     Route: 048
  2. INDERAL [Suspect]
     Indication: HYPERTENSION
     Dosage: 160 MG/DAY, ORAL
     Route: 048
  3. ATORVASTATIN (ATORVASTATIN) [Suspect]
     Indication: HYPERCHOLESTEROLAEMIA
     Dosage: 20 MG/DAY, ORAL
     Route: 048
  4. ASPIRINE (ACETILSALICYLIC ACID) [Suspect]
     Indication: PROPHYLAXIS
  5. HUMULIN (INSULIN HUMAN, INSULIN ISOPHANE, HUMAN BIOSYNTHETIC) [Suspect]
     Indication: DIABETES MELLITUS

REACTIONS (2)
  - GRANULOMA ANNULARE [None]
  - PHOTOSENSITIVITY REACTION [None]
